FAERS Safety Report 7893560-X (Version None)
Quarter: 2011Q4

REPORT INFORMATION
  Report Type: 
  Country: None (occurrence: None)
  Receive Date: 20111104
  Receipt Date: 20111026
  Transmission Date: 20120403
  Serious: Yes (Death)
  Sender: FDA-Public Use
  Company Number: JP-JNJFOC-20110610693

PATIENT
  Sex: Female
  Weight: 50 kg

DRUGS (10)
  1. REMICADE [Suspect]
     Route: 042
     Dates: start: 20091116
  2. FOLIC ACID [Concomitant]
     Route: 065
  3. REMICADE [Suspect]
     Route: 042
     Dates: start: 20110304
  4. REMICADE [Suspect]
     Route: 042
     Dates: start: 20100820
  5. REMICADE [Suspect]
     Route: 042
     Dates: end: 20110109
  6. RHEUMATREX [Suspect]
     Indication: RHEUMATOID ARTHRITIS
     Route: 048
     Dates: start: 20080507, end: 20110331
  7. ALENDRONATE SODIUM [Concomitant]
     Route: 048
  8. REMICADE [Suspect]
     Indication: RHEUMATOID ARTHRITIS
     Route: 042
     Dates: start: 20101210
  9. REMICADE [Suspect]
     Route: 042
     Dates: start: 20090223
  10. STEROIDS NOS [Concomitant]
     Route: 065

REACTIONS (2)
  - PNEUMONIA CYTOMEGALOVIRAL [None]
  - PNEUMOCYSTIS JIROVECI PNEUMONIA [None]
